FAERS Safety Report 8195430-9 (Version None)
Quarter: 2012Q1

REPORT INFORMATION
  Report Type: 
  Country: None (occurrence: None)
  Receive Date: 20120308
  Receipt Date: 20120302
  Transmission Date: 20120608
  Serious: Yes (Other)
  Sender: FDA-Public Use
  Company Number: PHHY2012BR019044

PATIENT
  Sex: Female

DRUGS (2)
  1. CAPTOPRIL [Suspect]
     Dosage: UNK
  2. DIOVAN HCT [Suspect]
     Dosage: (320/12.5 MG), UNK

REACTIONS (2)
  - INFARCTION [None]
  - URTICARIA [None]
